FAERS Safety Report 19952879 (Version 1)
Quarter: 2021Q4

REPORT INFORMATION
  Report Type: Other
  Country: TR (occurrence: TR)
  Receive Date: 20211014
  Receipt Date: 20211014
  Transmission Date: 20220303
  Serious: Yes (Death, Hospitalization, Disabling, Other)
  Sender: FDA-Public Use
  Company Number: TR-SAPTALIS PHARMACEUTICALS,LLC-000123

PATIENT
  Age: 17 Year
  Sex: Male

DRUGS (1)
  1. METFORMIN [Suspect]
     Active Substance: METFORMIN HYDROCHLORIDE
     Indication: Product used for unknown indication
     Dosage: 500 MG (PATIENT HAD TAKEN MANY OF THESE PILLS)

REACTIONS (12)
  - Sepsis [Fatal]
  - Toxicity to various agents [Unknown]
  - Diabetic ketoacidotic hyperglycaemic coma [Unknown]
  - Lactic acidosis [Unknown]
  - Rhabdomyolysis [Unknown]
  - Disease progression [Unknown]
  - Multiple organ dysfunction syndrome [Unknown]
  - Cardiac arrest [Unknown]
  - Hyperkalaemia [Unknown]
  - Peripheral ischaemia [Unknown]
  - Leg amputation [Unknown]
  - Overdose [Unknown]
